FAERS Safety Report 21519056 (Version 1)
Quarter: 2022Q4

REPORT INFORMATION
  Report Type: Spontaneous
  Country: US (occurrence: None)
  Receive Date: 20221027
  Receipt Date: 20221027
  Transmission Date: 20230113
  Serious: Yes (Disabling)
  Sender: FDA-Public Use
  Company Number: None

PATIENT
  Sex: Female

DRUGS (1)
  1. CAPECITABINE [Suspect]
     Active Substance: CAPECITABINE
     Dosage: 1500 MG BID ORAL?
     Route: 048

REACTIONS (10)
  - Neuropathy peripheral [None]
  - Electric shock sensation [None]
  - Muscular weakness [None]
  - Dry skin [None]
  - Nail discolouration [None]
  - Tooth discolouration [None]
  - Pain in extremity [None]
  - Arthralgia [None]
  - Polymenorrhoea [None]
  - Dysgraphia [None]
